FAERS Safety Report 24066936 (Version 1)
Quarter: 2024Q3

REPORT INFORMATION
  Report Type: Spontaneous
  Country: PL (occurrence: PL)
  Receive Date: 20240709
  Receipt Date: 20240709
  Transmission Date: 20241016
  Serious: Yes (Hospitalization, Disabling, Other)
  Sender: DR REDDYS
  Company Number: None

PATIENT
  Age: 24 Year
  Sex: Male

DRUGS (29)
  1. PREGABALIN [Suspect]
     Active Substance: PREGABALIN
     Indication: Painful ejaculation
     Dosage: 25 MILLIGRAM, ONCE A DAY AT NIGHT
  2. DICLOFENAC [Suspect]
     Active Substance: DICLOFENAC
     Indication: Painful ejaculation
     Dosage: 50 MILLIGRAM, BID
     Route: 054
  3. ALPRAZOLAM [Suspect]
     Active Substance: ALPRAZOLAM
     Indication: Anxiety
     Dosage: 0.5 MG, PER DAY
  4. TAMSULOSIN [Suspect]
     Active Substance: TAMSULOSIN
     Indication: Painful ejaculation
     Dosage: 0.4 MG, HS (SUSTAINED RELEASE) TAMSULOSIN SR?PER NIGHT
     Route: 042
  5. TAMSULOSIN [Suspect]
     Active Substance: TAMSULOSIN
     Indication: Perineal pain
  6. SILDENAFIL [Suspect]
     Active Substance: SILDENAFIL
     Indication: Neuropathy peripheral
     Dosage: AS NECESSARY?BEFORE INTERCOURSE
  7. SILDENAFIL [Suspect]
     Active Substance: SILDENAFIL
     Indication: Painful ejaculation
     Dosage: 50 MG OF SILDENAFIL BEFORE INTERCOURSE
  8. SILDENAFIL [Suspect]
     Active Substance: SILDENAFIL
     Indication: Sexual dysfunction
  9. VALPROIC ACID [Suspect]
     Active Substance: VALPROIC ACID
     Indication: Painful ejaculation
     Dosage: UNK
  10. VALPROIC ACID [Suspect]
     Active Substance: VALPROIC ACID
     Indication: Pain
     Route: 042
  11. LIDOCAINE HYDROCHLORIDE [Suspect]
     Active Substance: LIDOCAINE HYDROCHLORIDE
     Indication: Painful ejaculation
     Route: 042
  12. LIDOCAINE HYDROCHLORIDE [Suspect]
     Active Substance: LIDOCAINE HYDROCHLORIDE
     Indication: Pain
  13. METAMIZOLE [Suspect]
     Active Substance: METAMIZOLE
     Indication: Pain
  14. METAMIZOLE [Suspect]
     Active Substance: METAMIZOLE
     Indication: Painful ejaculation
  15. MAGNESIUM SULFATE [Suspect]
     Active Substance: MAGNESIUM SULFATE\MAGNESIUM SULFATE HEPTAHYDRATE
     Indication: Pain
  16. MAGNESIUM SULFATE [Suspect]
     Active Substance: MAGNESIUM SULFATE\MAGNESIUM SULFATE HEPTAHYDRATE
     Indication: Painful ejaculation
  17. DICLOFENAC [Suspect]
     Active Substance: DICLOFENAC
     Indication: Painful ejaculation
     Dosage: 50 MG, 2X PER DAY
  18. ESCITALOPRAM [Suspect]
     Active Substance: ESCITALOPRAM OXALATE
     Indication: Insomnia
     Dosage: 10 MILLIGRAM, DAILY
     Route: 048
  19. ESCITALOPRAM [Suspect]
     Active Substance: ESCITALOPRAM OXALATE
     Indication: Depression
  20. MIANSERIN [Suspect]
     Active Substance: MIANSERIN
     Indication: Anxiety
     Dosage: 30 MG, QD
  21. MIANSERIN [Suspect]
     Active Substance: MIANSERIN
     Indication: Depression
     Dosage: 30 MG
  22. MIANSERIN [Suspect]
     Active Substance: MIANSERIN
     Indication: Insomnia
  23. LEVOFLOXACIN [Suspect]
     Active Substance: LEVOFLOXACIN
     Indication: Depression
     Dosage: 1000 MILLIGRAM, ONCE A DAY(2 X 500 MG)
  24. LEVOFLOXACIN [Suspect]
     Active Substance: LEVOFLOXACIN
     Indication: Painful ejaculation
     Dosage: 1000 MILLIGRAM, ONCE A DAY(2 X 500 MG)
  25. LEVOFLOXACIN [Suspect]
     Active Substance: LEVOFLOXACIN
     Dosage: 1000 MILLIGRAM, ONCE A DAY(2 X 500 MG)
  26. VORTIOXETINE [Concomitant]
     Active Substance: VORTIOXETINE HYDROBROMIDE
     Indication: Product used for unknown indication
     Dosage: 10 MG
  27. MELATONIN [Concomitant]
     Active Substance: MELATONIN
     Indication: Insomnia
     Dosage: 2 MG, SUSTAINED-RELEASE
     Route: 065
  28. MELATONIN [Concomitant]
     Active Substance: MELATONIN
     Indication: Depression
  29. SILDENAFIL [Concomitant]
     Active Substance: SILDENAFIL
     Indication: Sexual dysfunction
     Dosage: 50 MG OF SILDENAFIL BEFORE INTERCOURSE

REACTIONS (9)
  - Pain [Recovered/Resolved]
  - Perineal pain [Recovered/Resolved with Sequelae]
  - Anxiety [Unknown]
  - Condition aggravated [Recovering/Resolving]
  - Painful ejaculation [Recovered/Resolved with Sequelae]
  - Groin pain [Not Recovered/Not Resolved]
  - Drug-disease interaction [Recovered/Resolved with Sequelae]
  - Burning sensation [Not Recovered/Not Resolved]
  - Product prescribing error [Unknown]
